FAERS Safety Report 9250560 (Version 1)
Quarter: 2013Q1

REPORT INFORMATION
  Report Type: Spontaneous
  Country: US (occurrence: None)
  Receive Date: 20130305
  Receipt Date: 20130305
  Transmission Date: 20140127
  Serious: Yes (Other)
  Sender: FDA-Public Use
  Company Number: 163-21880-12063149

PATIENT
  Age: 88 Year
  Sex: Female
  Weight: 55.79 kg

DRUGS (2)
  1. REVLIMID [Suspect]
     Indication: 5Q MINUS SYNDROME
     Dosage: 10MG, 2 IN 1 D, PO
     Route: 048
     Dates: start: 200811
  2. ZOMETA (ZOLEDRONIC ACID) [Concomitant]

REACTIONS (2)
  - Pubis fracture [None]
  - Fall [None]
